FAERS Safety Report 6845757-5 (Version None)
Quarter: 2010Q3

REPORT INFORMATION
  Report Type: 
  Country: None (occurrence: None)
  Receive Date: 20100715
  Receipt Date: 20070821
  Transmission Date: 20110219
  Serious: No
  Sender: FDA-Public Use
  Company Number: US-PFIZER INC-2007071056

PATIENT
  Sex: Female
  Weight: 54.4 kg

DRUGS (5)
  1. CHANTIX [Suspect]
     Indication: SMOKING CESSATION THERAPY
     Route: 048
     Dates: start: 20070803
  2. PAXIL [Concomitant]
  3. PROPRANOLOL [Concomitant]
  4. AMITRIPTYLINE HYDROCHLORIDE [Concomitant]
  5. LORAZEPAM [Concomitant]

REACTIONS (1)
  - DRUG INEFFECTIVE [None]
